FAERS Safety Report 7954322-8 (Version None)
Quarter: 2011Q4

REPORT INFORMATION
  Report Type: 
  Country: None (occurrence: None)
  Receive Date: 20111202
  Receipt Date: 20111122
  Transmission Date: 20120403
  Serious: Yes (Other)
  Sender: FDA-Public Use
  Company Number: IT-US-EMD SERONO, INC.-7096057

PATIENT
  Age: 41 Year
  Sex: Female

DRUGS (5)
  1. PROGESTERONE [Suspect]
     Indication: IN VITRO FERTILISATION
     Route: 030
  2. GONAL-F [Suspect]
     Indication: OVULATION INDUCTION
  3. GONADORELIN INJ [Suspect]
     Indication: OVULATION INDUCTION
  4. MEROPUR (URINARY FSH) [Suspect]
     Indication: OVULATION INDUCTION
  5. CHORIONIC GONADOTROPIN [Suspect]
     Indication: OVULATION INDUCTION

REACTIONS (1)
  - CYSTOSARCOMA PHYLLODES [None]
